FAERS Safety Report 12937167 (Version 4)
Quarter: 2017Q2

REPORT INFORMATION
  Report Type: Spontaneous
  Country: US (occurrence: US)
  Receive Date: 20161114
  Receipt Date: 20170424
  Transmission Date: 20170830
  Serious: Yes (Hospitalization, Other)
  Sender: FDA-Public Use
  Company Number: US-PFIZER INC-2016524122

PATIENT
  Sex: Female

DRUGS (33)
  1. LEVOTHYROXINE. [Concomitant]
     Active Substance: LEVOTHYROXINE
     Dosage: 300 UG, DAILY
  2. DIAZEPAM. [Concomitant]
     Active Substance: DIAZEPAM
     Dosage: 2 MG, 2-3 TIMES A DAYAS NEEDED
  3. BUPROPION. [Concomitant]
     Active Substance: BUPROPION
     Dosage: 150 MG, UNK
  4. DICYCLOMINE [Concomitant]
     Active Substance: DICYCLOMINE HYDROCHLORIDE
     Dosage: 1 DF, 4 TIMES A DAYAS NEEDED
  5. MAGNESIUM [Concomitant]
     Active Substance: MAGNESIUM
     Dosage: 3 TABLETS OF 250 MG IN THE MORNING AND 2 TABLETS IN THE AFTERNOON
  6. MAGNESIUM [Concomitant]
     Active Substance: MAGNESIUM
     Dosage: 750 MG, 2X/DAY
  7. ZANTAC [Concomitant]
     Active Substance: RANITIDINE HYDROCHLORIDE
     Dosage: 150 MG, AT SUPPER AND AS NEEDED
  8. VITAMIN D3 [Concomitant]
     Active Substance: CHOLECALCIFEROL
     Dosage: 2000 IU (1 TABLET), 1X/DAY (EVERY MORNING)
  9. TRAMADOL. [Concomitant]
     Active Substance: TRAMADOL
     Indication: FIBROMYALGIA
     Dosage: 50 MG, 4X/DAY
  10. VIACTIV CALCIUM + D [Concomitant]
     Dosage: 1 DF, 1X/DAY (IN THE MORNING)
  11. CLONAZEPAM. [Concomitant]
     Active Substance: CLONAZEPAM
     Indication: INSOMNIA
     Dosage: 4 MG (2 TABLETS), 1X/DAY (EVERY AFTERNOON)
  12. PRAZOSIN. [Concomitant]
     Active Substance: PRAZOSIN
     Indication: SLEEP TERROR
     Dosage: 2 MG, 1X/DAY (EVERY AFTERNOON)
  13. LYRICA [Suspect]
     Active Substance: PREGABALIN
     Indication: MIGRAINE
  14. GABAPENTIN. [Concomitant]
     Active Substance: GABAPENTIN
     Dosage: 600 MG, 3X/DAY
  15. VITAFUSION CALCIUM [Concomitant]
     Dosage: 1 DF, 1X/DAY
  16. CLONAZEPAM. [Concomitant]
     Active Substance: CLONAZEPAM
     Dosage: 4 MG, UNK
     Dates: start: 2010
  17. BUPROPION. [Concomitant]
     Active Substance: BUPROPION
     Dosage: 300 MG (2 TABLETS), DAILY
  18. LEVOTHYROXINE. [Concomitant]
     Active Substance: LEVOTHYROXINE
     Dosage: 150 UG, 1X/DAY (EVERY MORNING)
  19. PRILOSEC [Concomitant]
     Active Substance: OMEPRAZOLE MAGNESIUM
     Dosage: 20 MG, 2X/DAY
  20. EXCEDRIN MIGRAINE [Concomitant]
     Active Substance: ACETAMINOPHEN\ASPIRIN\CAFFEINE
     Dosage: 1000 MG (2 TABLETS), EVERY 8 HOURS AS NEEDED
  21. TRAMADOL. [Concomitant]
     Active Substance: TRAMADOL
     Dosage: 2 DF, AS NEEDED, (Q 8 HR AS NEEDED)
     Dates: start: 2016
  22. CELEBREX [Concomitant]
     Active Substance: CELECOXIB
     Dosage: 200 MG, UNK
     Dates: start: 2015
  23. FOLIC ACID. [Concomitant]
     Active Substance: FOLIC ACID
     Dosage: 1 MG, 1X/DAY (EVERY MORNING)
  24. PRILOSEC [Concomitant]
     Active Substance: OMEPRAZOLE MAGNESIUM
     Dosage: 40 MG, DAILY
  25. RANITIDINE. [Concomitant]
     Active Substance: RANITIDINE
     Dosage: UNK UNK, DAILY [150 MG, 1-2 X DAILY]
  26. CELEBREX [Concomitant]
     Active Substance: CELECOXIB
     Indication: ARTHRITIS
     Dosage: 200 MG, 1X/DAY
  27. FOLIC ACID. [Concomitant]
     Active Substance: FOLIC ACID
     Dosage: 1 MG, DAILY
  28. VITAMIN D3 [Concomitant]
     Active Substance: CHOLECALCIFEROL
     Dosage: 1000 IU, DAILY, (1 TAB)
  29. PRAZOSIN. [Concomitant]
     Active Substance: PRAZOSIN
     Dosage: 5 MG, 1X/DAY (NIGHTLY)
     Dates: start: 2012
  30. ONDANSETRON HYDROCHLORIDE. [Concomitant]
     Active Substance: ONDANSETRON HYDROCHLORIDE
     Dosage: 4 MG, EVERY 8 HOURS AS NEEDED
  31. LYRICA [Suspect]
     Active Substance: PREGABALIN
     Indication: FIBROMYALGIA
     Dosage: 225 MG, 2X/DAY, (1 PILL AM, 1 PILL PM)
     Route: 048
  32. TYLENOL [Concomitant]
     Active Substance: ACETAMINOPHEN
     Dosage: 2 TABLETS OF 650 MG EVERY 8 HOURS AS NEEDED
  33. IBUPROFEN. [Concomitant]
     Active Substance: IBUPROFEN
     Dosage: 800 MG (4 TABLETS), EVERY 8 HOURS AS NEEDED

REACTIONS (16)
  - Migraine [Recovering/Resolving]
  - Headache [Unknown]
  - Fibromyalgia [Recovered/Resolved]
  - Condition aggravated [Recovered/Resolved]
  - Impaired gastric emptying [Unknown]
  - Dissociative identity disorder [Unknown]
  - Thyroid disorder [Unknown]
  - Arthritis [Unknown]
  - Post-traumatic stress disorder [Unknown]
  - Malaise [Unknown]
  - Irritable bowel syndrome [Unknown]
  - Depression [Unknown]
  - Insomnia [Unknown]
  - Gastrooesophageal reflux disease [Unknown]
  - Barrett^s oesophagus [Unknown]
  - Feeling abnormal [Unknown]

NARRATIVE: CASE EVENT DATE: 2004
